FAERS Safety Report 15654225 (Version 4)
Quarter: 2019Q1

REPORT INFORMATION
  Report Type: Report from Study
  Country: US (occurrence: US)
  Receive Date: 20181125
  Receipt Date: 20190103
  Transmission Date: 20190417
  Serious: Yes (Hospitalization, Other)
  Sender: FDA-Public Use
  Company Number: US-SHIRE-US201845684

PATIENT
  Sex: Female
  Weight: 50.79 kg

DRUGS (1)
  1. GATTEX [Suspect]
     Active Substance: TEDUGLUTIDE\WATER
     Indication: SHORT-BOWEL SYNDROME
     Dosage: 0.253 ML, 1X/DAY:QD
     Route: 058

REACTIONS (2)
  - Dehydration [Unknown]
  - Hospitalisation [Unknown]
